FAERS Safety Report 7496947-2 (Version None)
Quarter: 2011Q2

REPORT INFORMATION
  Report Type: 
  Country: None (occurrence: None)
  Receive Date: 20110523
  Receipt Date: 20110513
  Transmission Date: 20111010
  Serious: Yes (Hospitalization)
  Sender: FDA-Public Use
  Company Number: AU-MERCK-1105USA02355

PATIENT
  Age: 10 Year
  Sex: Male
  Weight: 35 kg

DRUGS (2)
  1. VENTOLIN [Concomitant]
     Indication: ASTHMA
     Route: 055
     Dates: start: 20050501
  2. SINGULAIR [Suspect]
     Indication: ASTHMA
     Route: 048
     Dates: start: 20100517, end: 20110325

REACTIONS (9)
  - DECREASED INTEREST [None]
  - MOOD SWINGS [None]
  - IRRITABILITY [None]
  - FEELING OF DESPAIR [None]
  - LOSS OF CONSCIOUSNESS [None]
  - CRYING [None]
  - AGGRESSION [None]
  - DISTURBANCE IN ATTENTION [None]
  - APATHY [None]
